FAERS Safety Report 23590761 (Version 1)
Quarter: 2024Q1

REPORT INFORMATION
  Report Type: Spontaneous
  Country: PT (occurrence: PT)
  Receive Date: 20240304
  Receipt Date: 20240304
  Transmission Date: 20240409
  Serious: Yes (Other)
  Sender: FDA-Public Use
  Company Number: None

PATIENT
  Age: 73 Year
  Sex: Female
  Weight: 37.6 kg

DRUGS (6)
  1. RYBREVANT [Suspect]
     Active Substance: AMIVANTAMAB-VMJW
     Indication: Non-small cell lung cancer stage IV
     Dosage: 350MG IN D1 (SINGLE DOSE).
     Route: 042
     Dates: start: 20240122
  2. DEXAMETHASONE [Concomitant]
     Active Substance: DEXAMETHASONE
     Route: 042
  3. SIMVASTATIN [Concomitant]
     Active Substance: SIMVASTATIN
  4. HYDROCHLOROTHIAZIDE\VALSARTAN [Concomitant]
     Active Substance: HYDROCHLOROTHIAZIDE\VALSARTAN
  5. ACETAMINOPHEN [Concomitant]
     Active Substance: ACETAMINOPHEN
     Route: 048
  6. CLEMASTINE [Concomitant]
     Active Substance: CLEMASTINE
     Route: 042

REACTIONS (5)
  - Nausea [Recovered/Resolved]
  - Feeling hot [Recovered/Resolved]
  - Body temperature increased [Recovered/Resolved]
  - Vomiting [Recovered/Resolved]
  - Tremor [Recovered/Resolved]

NARRATIVE: CASE EVENT DATE: 20240122
